FAERS Safety Report 4314248-8 (Version None)
Quarter: 2004Q1

REPORT INFORMATION
  Report Type: 
  Country: None (occurrence: None)
  Receive Date: 20040309
  Receipt Date: 20040309
  Transmission Date: 20041129
  Serious: Yes (Other)
  Sender: FDA-Public Use
  Company Number: None

PATIENT
  Sex: Male
  Weight: 124.7392 kg

DRUGS (17)
  1. GAMMAR-P I.V. [Suspect]
     Indication: HYPOGAMMAGLOBULINAEMIA
     Dosage: 30GM -5%- Q MONTH INTRAVENOUS
     Route: 042
     Dates: start: 20040227, end: 20040227
  2. BENADRYL [Concomitant]
  3. DIOVAN [Concomitant]
  4. WELLBUTRIN [Concomitant]
  5. LIPITOR [Concomitant]
  6. ALLEGRA [Concomitant]
  7. PREVACID [Concomitant]
  8. ALBUTEROL/ATORVENT [Concomitant]
  9. SINGULAIR [Concomitant]
  10. ZOCOR [Concomitant]
  11. UNIPRIL [Concomitant]
  12. LEVSIN PB [Concomitant]
  13. FLONSE [Concomitant]
  14. VIT A [Concomitant]
  15. VIT C [Concomitant]
  16. VIT E [Concomitant]
  17. PAMENTO [Concomitant]

REACTIONS (1)
  - URTICARIA [None]
